FAERS Safety Report 18641801 (Version 3)
Quarter: 2021Q1

REPORT INFORMATION
  Report Type: Spontaneous
  Country: SE (occurrence: SE)
  Receive Date: 20201221
  Receipt Date: 20210226
  Transmission Date: 20210419
  Serious: Yes (Disabling)
  Sender: FDA-Public Use
  Company Number: NVSC2020SE330878

PATIENT
  Age: 47 Year
  Sex: Male
  Weight: 80 kg

DRUGS (5)
  1. DESONIX [BUDESONIDE] [Suspect]
     Active Substance: BUDESONIDE
     Indication: SINUS PAIN
     Dosage: UNK, (DOSAGE INFORMATION: NOT REPORTED, PERIODICALLY TREATED WITH ALL FOUR SUSPECT DRUGS DURING THE
     Route: 065
     Dates: start: 2005, end: 2018
  2. AVAMYS [Suspect]
     Active Substance: FLUTICASONE FUROATE
     Indication: SINUS PAIN
     Dosage: UNK, (DOSAGE INFORMATION: NOT REPORTED, PERIODICALLY TREATED WITH ALL FOUR SUSPECT DRUGS DURING THE
     Route: 065
     Dates: start: 2005, end: 2018
  3. NASONEX [Suspect]
     Active Substance: MOMETASONE FUROATE
     Dosage: 2 DF, QD (2 (UNITS NOT PROVIDED), 50 MICROGRAM PER ACTUATION, ONE ACTUATION IN EACH N)
     Route: 065
     Dates: start: 2005, end: 2018
  4. MOMMOX [Suspect]
     Active Substance: MOMETASONE FUROATE
     Indication: SINUS PAIN
     Dosage: UNK, (DOSAGE INFORMATION: NOT REPORTED, PERIODICALLY TREATED WITH ALL FOUR SUSPECT DRUGS DURING THE
     Route: 065
     Dates: start: 2005, end: 2018
  5. NASONEX [Suspect]
     Active Substance: MOMETASONE FUROATE
     Indication: SINUS PAIN
     Dosage: 2 DF, QD (2 DOSAGE FORM, QD, 50 MICROGRAM, QD ONE ACTUATION IN EACH NOSTRIL MORNING AND EVENING. PER
     Route: 065
     Dates: start: 2005, end: 2018

REACTIONS (3)
  - Neuritis [Not Recovered/Not Resolved]
  - Neuralgia [Not Recovered/Not Resolved]
  - Condition aggravated [Not Recovered/Not Resolved]

NARRATIVE: CASE EVENT DATE: 2015
